FAERS Safety Report 18637606 (Version 1)
Quarter: 2020Q4

REPORT INFORMATION
  Report Type: Spontaneous
  Country: GB (occurrence: GB)
  Receive Date: 20201218
  Receipt Date: 20201218
  Transmission Date: 20210114
  Serious: Yes (Disabling)
  Sender: FDA-Public Use
  Company Number: GB-BAYER-2020-273938

PATIENT
  Age: 38 Year
  Sex: Female
  Weight: 82.55 kg

DRUGS (2)
  1. IRON [Concomitant]
     Active Substance: IRON
  2. MIRENA [Suspect]
     Active Substance: LEVONORGESTREL
     Indication: UTERINE LEIOMYOMA
     Dosage: 20 ?G PER DAY CONTINUOUSLY
     Route: 015
     Dates: start: 20201022

REACTIONS (11)
  - Feeling abnormal [Unknown]
  - Headache [Unknown]
  - Metrorrhagia [Unknown]
  - Depression [Not Recovered/Not Resolved]
  - Sluggishness [Unknown]
  - Genital haemorrhage [Unknown]
  - Tension [Unknown]
  - Disturbance in attention [Unknown]
  - Antisocial behaviour [Unknown]
  - Premenstrual syndrome [Unknown]
  - Anger [Unknown]

NARRATIVE: CASE EVENT DATE: 20201024
